FAERS Safety Report 17681980 (Version 5)
Quarter: 2020Q2

REPORT INFORMATION
  Report Type: Spontaneous
  Country: PT (occurrence: PT)
  Receive Date: 20200418
  Receipt Date: 20200521
  Transmission Date: 20200714
  Serious: Yes (Other)
  Sender: FDA-Public Use
  Company Number: PT-AUROBINDO-AUR-APL-2020-017761

PATIENT
  Age: 40 Year
  Sex: Female

DRUGS (3)
  1. ROPIVACAINE SOLUTION FOR INJECTION [Suspect]
     Active Substance: ROPIVACAINE
     Indication: ANALGESIC THERAPY
     Dosage: 5 MILLILITER (TWO HOURS AFTER FIRST INJECTION)
     Route: 065
  2. ROPIVACAINE SOLUTION FOR INJECTION [Suspect]
     Active Substance: ROPIVACAINE
     Indication: EPIDURAL ANAESTHESIA
     Dosage: 8 MILLILITER
     Route: 065
  3. SODIUM CHLORIDE. [Concomitant]
     Active Substance: SODIUM CHLORIDE
     Indication: PRODUCT USED FOR UNKNOWN INDICATION
     Dosage: UNK
     Route: 065

REACTIONS (11)
  - Neurological symptom [Recovered/Resolved]
  - Headache [Recovered/Resolved]
  - Diplopia [Recovered/Resolved]
  - Acoustic neuroma [Recovered/Resolved with Sequelae]
  - Speech disorder [Recovered/Resolved]
  - Dysarthria [Recovered/Resolved]
  - Facial paresis [Recovered/Resolved]
  - Unmasking of previously unidentified disease [Recovered/Resolved]
  - Maternal exposure during pregnancy [Recovered/Resolved]
  - Exposure during pregnancy [Unknown]
  - Brain neoplasm [Recovered/Resolved]
